FAERS Safety Report 6011441-3 (Version None)
Quarter: 2008Q4

REPORT INFORMATION
  Report Type: 
  Country: None (occurrence: None)
  Receive Date: 20081218
  Receipt Date: 20020430
  Transmission Date: 20090506
  Serious: Yes (Death)
  Sender: FDA-Public Use
  Company Number: DE-ROCHE-312626

PATIENT
  Weight: 82 kg

DRUGS (2)
  1. CAPECITABINE [Suspect]
     Indication: DRUG USE FOR UNKNOWN INDICATION
     Route: 048
     Dates: start: 20011019, end: 20020221
  2. CAMPTOSAR [Concomitant]
     Dosage: RECEIVED ON THE 1ST AND 8TH DAY OF EVERY CYCLE.
     Route: 042

REACTIONS (1)
  - DEATH [None]
